FAERS Safety Report 18258586 (Version 2)
Quarter: 2020Q3

REPORT INFORMATION
  Report Type: Spontaneous
  Country: NL (occurrence: NL)
  Receive Date: 20200911
  Receipt Date: 20200915
  Transmission Date: 20201103
  Serious: Yes (Other)
  Sender: FDA-Public Use
  Company Number: NL-ALLERGAN-2034097US

PATIENT
  Sex: Male

DRUGS (4)
  1. CARIPRAZINE HCL ? BP [Suspect]
     Active Substance: CARIPRAZINE HYDROCHLORIDE
     Dosage: 4.5 MG, QD
     Route: 065
     Dates: start: 20200131, end: 20200227
  2. CARIPRAZINE HCL ? BP [Suspect]
     Active Substance: CARIPRAZINE HYDROCHLORIDE
     Dosage: 6 MG, QD
     Route: 065
     Dates: start: 20200122, end: 20200131
  3. CARIPRAZINE HCL ? BP [Suspect]
     Active Substance: CARIPRAZINE HYDROCHLORIDE
     Dosage: 4.5 MG, QD
     Route: 065
     Dates: start: 20200116, end: 20200122
  4. CARIPRAZINE HCL ? BP [Suspect]
     Active Substance: CARIPRAZINE HYDROCHLORIDE
     Indication: SCHIZOPHRENIA
     Dosage: 3 MG
     Route: 065
     Dates: start: 20200227

REACTIONS (6)
  - Vision blurred [Unknown]
  - Abnormal dreams [Unknown]
  - Dizziness [Unknown]
  - Fatigue [Unknown]
  - Akathisia [Unknown]
  - Tunnel vision [Unknown]

NARRATIVE: CASE EVENT DATE: 2020
